FAERS Safety Report 4658940-4 (Version None)
Quarter: 2005Q2

REPORT INFORMATION
  Report Type: 
  Country: None (occurrence: None)
  Receive Date: 20050509
  Receipt Date: 20050418
  Transmission Date: 20051028
  Serious: Yes (Disabling)
  Sender: FDA-Public Use
  Company Number: EWC050142236

PATIENT
  Age: 56 Year
  Sex: Male

DRUGS (2)
  1. ZYPREXA [Suspect]
     Indication: DELUSIONAL DISORDER, PERSECUTORY TYPE
     Dosage: 10 MG
     Dates: start: 20001007
  2. NALTREXONE [Concomitant]

REACTIONS (2)
  - CONDITION AGGRAVATED [None]
  - TORTICOLLIS [None]
